FAERS Safety Report 6130145-X (Version None)
Quarter: 2009Q1

REPORT INFORMATION
  Report Type: 
  Country: None (occurrence: None)
  Receive Date: 20090324
  Receipt Date: 20090319
  Transmission Date: 20090719
  Serious: Yes (Hospitalization)
  Sender: FDA-Public Use
  Company Number: US-BRISTOL-MYERS SQUIBB COMPANY-14191225

PATIENT
  Age: 44 Year
  Sex: Female
  Weight: 53 kg

DRUGS (1)
  1. ERBITUX [Suspect]
     Indication: ADENOCARCINOMA OF THE CERVIX
     Dosage: COURSE 1 DAY 1: 400MG/M2 250MG/M2 DAY 8 AND WEEKLY THEREAFTER THERAPY END DATE: 30APR08
     Route: 042
     Dates: start: 20080409, end: 20080409

REACTIONS (1)
  - SMALL INTESTINAL OBSTRUCTION [None]
